FAERS Safety Report 7826115-3 (Version None)
Quarter: 2011Q4

REPORT INFORMATION
  Report Type: 
  Country: None (occurrence: None)
  Receive Date: 20111019
  Receipt Date: 20111013
  Transmission Date: 20120403
  Serious: Yes (Death, Hospitalization, Other)
  Sender: FDA-Public Use
  Company Number: US-CELGENEUS-163-21880-11101689

PATIENT
  Sex: Male

DRUGS (11)
  1. REVLIMID [Suspect]
     Indication: MULTIPLE MYELOMA
     Dosage: 25 MILLIGRAM
     Route: 048
     Dates: start: 20101202
  2. REVLIMID [Suspect]
     Dosage: 10-15-20MG
     Route: 048
     Dates: start: 20110201
  3. FILGRASTIM [Concomitant]
     Dosage: 480 MICROGRAM
     Route: 065
     Dates: start: 20110101
  4. ACYCLOVIR [Concomitant]
     Indication: INFECTION
     Dosage: 1
     Route: 065
     Dates: start: 20110101
  5. DEXAMETHASONE [Concomitant]
     Dosage: 40 MILLIGRAM
     Route: 048
     Dates: start: 20110101, end: 20110716
  6. TRAZODONE HYDROCHLORIDE [Concomitant]
     Indication: SLEEP DISORDER
     Dosage: 50 MILLIGRAM
     Route: 065
     Dates: start: 20110617
  7. REVLIMID [Suspect]
     Dosage: 25 MILLIGRAM
     Route: 048
     Dates: start: 20110601, end: 20110716
  8. CYCLOPHOSPHAMIDE [Concomitant]
     Dosage: 10 TABLET
     Route: 048
     Dates: start: 20110516
  9. REVLIMID [Suspect]
     Dosage: 25 MILLIGRAM
     Route: 048
     Dates: start: 20110101
  10. REVLIMID [Suspect]
     Dosage: 20 MILLIGRAM
     Route: 048
     Dates: start: 20101201
  11. AMIODARONE HCL [Concomitant]
     Dosage: 200 MILLIGRAM
     Route: 065
     Dates: start: 20110101

REACTIONS (3)
  - DIARRHOEA [None]
  - THROMBOCYTOPENIA [None]
  - MULTIPLE MYELOMA [None]
